FAERS Safety Report 8202522-4 (Version None)
Quarter: 2012Q1

REPORT INFORMATION
  Report Type: 
  Country: None (occurrence: None)
  Receive Date: 20120312
  Receipt Date: 20120302
  Transmission Date: 20120608
  Serious: Yes (Hospitalization)
  Sender: FDA-Public Use
  Company Number: US-JNJFOC-20120108526

PATIENT
  Sex: Female
  Weight: 53.98 kg

DRUGS (7)
  1. XARELTO [Suspect]
     Indication: ATRIAL FIBRILLATION
     Route: 048
     Dates: start: 20111219, end: 20120118
  2. LISINOPRIL AND HYDROCHLOROTHIAZIDE [Concomitant]
     Route: 048
     Dates: start: 20061023
  3. IPRATROPIUM BROMIDE [Concomitant]
     Route: 055
     Dates: start: 20111101
  4. XARELTO [Suspect]
     Indication: CEREBROVASCULAR ACCIDENT PROPHYLAXIS
     Route: 048
     Dates: start: 20111219, end: 20120118
  5. POLYETHYLENE GLYCOL [Concomitant]
     Route: 048
     Dates: start: 20111101
  6. MULTAQ [Concomitant]
     Route: 048
  7. WARFARIN SODIUM [Concomitant]
     Dates: end: 20111218

REACTIONS (2)
  - GASTRIC ULCER [None]
  - UPPER GASTROINTESTINAL HAEMORRHAGE [None]
